FAERS Safety Report 7326243-5 (Version None)
Quarter: 2011Q1

REPORT INFORMATION
  Report Type: 
  Country: None (occurrence: None)
  Receive Date: 20110302
  Receipt Date: 20110224
  Transmission Date: 20110831
  Serious: Yes (Death)
  Sender: FDA-Public Use
  Company Number: A0915298A

PATIENT
  Age: 64 Year
  Sex: Female

DRUGS (1)
  1. ADVAIR DISKUS 100/50 [Suspect]
     Indication: PULMONARY FIBROSIS
     Dosage: 1PUFF TWICE PER DAY
     Route: 055
     Dates: start: 20060201, end: 20110217

REACTIONS (1)
  - PULMONARY FIBROSIS [None]
